FAERS Safety Report 5900746-X (Version None)
Quarter: 2008Q3

REPORT INFORMATION
  Report Type: 
  Country: None (occurrence: None)
  Receive Date: 20080929
  Receipt Date: 20080915
  Transmission Date: 20090109
  Serious: Yes (Hospitalization, Other)
  Sender: FDA-Public Use
  Company Number: ES-JNJFOC-20040103765

PATIENT
  Age: 69 Year
  Sex: Male
  Weight: 79 kg

DRUGS (9)
  1. REMICADE [Suspect]
     Indication: PSORIATIC ARTHROPATHY
     Dosage: 8 DOSES
     Route: 042
  2. ANGIOTENSIN CONVERTING ENZYME INHIBITOR [Concomitant]
     Indication: HYPERTENSION
  3. NIFEDIPINE [Concomitant]
     Indication: BLOOD PRESSURE
  4. ALPROSTADIL [Concomitant]
     Indication: BENIGN PROSTATIC HYPERPLASIA
  5. DEFLAZACORT [Concomitant]
     Indication: ARTHRITIS
     Route: 048
  6. DICLOFENAC [Concomitant]
     Indication: ARTHRITIS
     Route: 048
  7. OMEPRAZOLE [Concomitant]
     Route: 048
  8. ENALAPRIL MALEATE [Concomitant]
  9. TRAMADOL HCL [Concomitant]

REACTIONS (1)
  - PROSTATE CANCER [None]
